FAERS Safety Report 4977431-4 (Version None)
Quarter: 2006Q2

REPORT INFORMATION
  Report Type: 
  Country: None (occurrence: None)
  Receive Date: 20060413
  Receipt Date: 20060330
  Transmission Date: 20061013
  Serious: Yes (Hospitalization)
  Sender: FDA-Public Use
  Company Number: 2005P1000460

PATIENT
  Age: 52 Year
  Sex: Male
  Weight: 101 kg

DRUGS (7)
  1. RETEPLASE (RETEPLASE) [Suspect]
     Indication: ACUTE MYOCARDIAL INFARCTION
     Dosage: IV
     Dates: start: 20050531, end: 20050531
  2. REOPRO [Suspect]
     Indication: ACUTE MYOCARDIAL INFARCTION
     Dosage: IV
     Route: 042
     Dates: start: 20050531
  3. TRANDOLAPRIL [Concomitant]
  4. ASPIRIN [Concomitant]
  5. TICLOPIDINE HCL [Concomitant]
  6. ATORVASTATIN CALCIUM [Concomitant]
  7. METOPROLOL [Concomitant]

REACTIONS (2)
  - ANGINA PECTORIS [None]
  - CORONARY ARTERY STENOSIS [None]
